FAERS Safety Report 9735861 (Version 1)
Quarter: 2013Q4

REPORT INFORMATION
  Report Type: Spontaneous
  Country: US (occurrence: US)
  Receive Date: 20131206
  Receipt Date: 20131206
  Transmission Date: 20140711
  Serious: No
  Sender: FDA-Public Use
  Company Number: US-GILEAD-2009-0024186

PATIENT
  Age: 52 Year
  Sex: Female

DRUGS (18)
  1. LETAIRIS [Suspect]
     Indication: PULMONARY ARTERIAL HYPERTENSION
     Route: 048
     Dates: start: 20080328
  2. DILTIAZEM CD [Concomitant]
  3. LASIX [Concomitant]
  4. LOPRESSOR [Concomitant]
  5. LYRICA [Concomitant]
  6. AVALIDE [Concomitant]
  7. XIFAXAN [Concomitant]
  8. SINGULAIR [Concomitant]
  9. ADVAIR [Concomitant]
  10. ALLEGRA [Concomitant]
  11. PREDNISONE [Concomitant]
  12. SYNTHROID [Concomitant]
  13. AMARYL [Concomitant]
  14. ALTACE [Concomitant]
  15. NEXIUM [Concomitant]
  16. LIMBREL [Concomitant]
  17. ENBREL [Concomitant]
  18. KLOR-CON [Concomitant]

REACTIONS (1)
  - Anaemia [Not Recovered/Not Resolved]
